FAERS Safety Report 9779580 (Version 1)
Quarter: 2013Q4

REPORT INFORMATION
  Report Type: Spontaneous
  Country: US (occurrence: US)
  Receive Date: 20131223
  Receipt Date: 20131223
  Transmission Date: 20140711
  Serious: No
  Sender: FDA-Public Use
  Company Number: US-PFIZER INC-2013363912

PATIENT
  Age: 40 Year
  Sex: Female
  Weight: 77.1 kg

DRUGS (2)
  1. EFFEXOR XR [Suspect]
     Indication: ANXIETY
     Dosage: 75 MG, DAILY
     Dates: start: 201308, end: 201308
  2. EFFEXOR XR [Suspect]
     Dosage: 37.5 MG, DAILY
     Dates: start: 201308

REACTIONS (6)
  - Drug withdrawal syndrome [Unknown]
  - Dizziness [Unknown]
  - Disorientation [Unknown]
  - Irritability [Unknown]
  - Confusional state [Unknown]
  - Vertigo [Unknown]
